FAERS Safety Report 21612102 (Version 1)
Quarter: 2022Q4

REPORT INFORMATION
  Report Type: Spontaneous
  Country: JP (occurrence: JP)
  Receive Date: 20221118
  Receipt Date: 20221118
  Transmission Date: 20230113
  Serious: Yes (Other)
  Sender: FDA-Public Use
  Company Number: JP-TAKEDA-2022TJP077280

PATIENT

DRUGS (1)
  1. ENTYVIO [Suspect]
     Active Substance: VEDOLIZUMAB
     Indication: Colitis ulcerative
     Dosage: 300 MILLIGRAM, Q8WEEKS
     Route: 041

REACTIONS (2)
  - Colitis ulcerative [Recovering/Resolving]
  - Therapeutic product effect incomplete [Recovered/Resolved]
